FAERS Safety Report 7443739-6 (Version None)
Quarter: 2011Q2

REPORT INFORMATION
  Report Type: 
  Country: None (occurrence: None)
  Receive Date: 20110428
  Receipt Date: 20110121
  Transmission Date: 20111010
  Serious: No
  Sender: FDA-Public Use
  Company Number: US-BAUSCH-2011BL000392

PATIENT
  Age: 65 Year
  Sex: Female

DRUGS (8)
  1. ALREX [Suspect]
     Indication: EPISCLERITIS
     Route: 047
     Dates: start: 20101201, end: 20110101
  2. ALREX [Suspect]
     Route: 047
     Dates: start: 20110101, end: 20110101
  3. ALREX [Suspect]
     Indication: OFF LABEL USE
     Route: 047
     Dates: start: 20101201, end: 20110101
  4. ALREX [Suspect]
     Route: 047
     Dates: start: 20110101, end: 20110101
  5. ALREX [Suspect]
     Route: 047
     Dates: start: 20110118, end: 20110118
  6. ALREX [Suspect]
     Route: 047
     Dates: start: 20110101, end: 20110101
  7. ALREX [Suspect]
     Route: 047
     Dates: start: 20110118, end: 20110118
  8. ALREX [Suspect]
     Route: 047
     Dates: start: 20110101, end: 20110101

REACTIONS (1)
  - REACTION TO PRESERVATIVES [None]
